FAERS Safety Report 21214979 (Version 1)
Quarter: 2022Q3

REPORT INFORMATION
  Report Type: Spontaneous
  Country: US (occurrence: None)
  Receive Date: 20220816
  Receipt Date: 20220816
  Transmission Date: 20221027
  Serious: No
  Sender: FDA-Public Use
  Company Number: US-ROCHE-3143200

PATIENT
  Sex: Female
  Weight: 39.044 kg

DRUGS (1)
  1. EVRYSDI [Suspect]
     Active Substance: RISDIPLAM
     Indication: Spinal muscular atrophy
     Dosage: ONGOING: NO
     Route: 048
     Dates: start: 202107

REACTIONS (2)
  - COVID-19 [Unknown]
  - Pain [Recovered/Resolved]
